FAERS Safety Report 6786579-3 (Version None)
Quarter: 2010Q2

REPORT INFORMATION
  Report Type: 
  Country: None (occurrence: None)
  Receive Date: 20100623
  Receipt Date: 20100610
  Transmission Date: 20101027
  Serious: Yes (Disabling, Other)
  Sender: FDA-Public Use
  Company Number: US-ELI_LILLY_AND_COMPANY-US201005006252

PATIENT
  Sex: Female

DRUGS (11)
  1. FORTEO [Suspect]
     Indication: OSTEOPENIA
     Dosage: 20 UG, DAILY (1/D)
     Dates: start: 20100517
  2. HIZAAR [Concomitant]
     Dosage: UNK, DAILY (1/D)
  3. TOPROL-XL [Concomitant]
     Dosage: UNK, DAILY (1/D)
  4. VALIUM [Concomitant]
     Dosage: UNK, DAILY (1/D)
  5. NEURONTIN [Concomitant]
     Dosage: UNK, DAILY (1/D)
  6. DARVOCET [Concomitant]
     Dosage: 100 MG, DAILY (1/D)
  7. NEXIUM [Concomitant]
     Dosage: UNK, DAILY (1/D)
  8. COUMADIN [Concomitant]
     Dosage: UNK, DAILY (1/D)
  9. ALLEGRA [Concomitant]
     Dosage: UNK, DAILY (1/D)
  10. NASONEX [Concomitant]
     Dosage: UNK, DAILY (1/D)
  11. COLACE [Concomitant]
     Dosage: UNK, DAILY (1/D)

REACTIONS (7)
  - CONSTIPATION [None]
  - DISCOMFORT [None]
  - FALL [None]
  - FATIGUE [None]
  - MUSCULAR WEAKNESS [None]
  - OEDEMA PERIPHERAL [None]
  - WRIST FRACTURE [None]
